FAERS Safety Report 13499853 (Version 1)
Quarter: 2017Q2

REPORT INFORMATION
  Report Type: Spontaneous
  Country: US (occurrence: US)
  Receive Date: 20170501
  Receipt Date: 20170501
  Transmission Date: 20170830
  Serious: No
  Sender: FDA-Public Use
  Company Number: US-009507513-1704USA009861

PATIENT
  Age: 24 Year
  Sex: Female
  Weight: 90.7 kg

DRUGS (5)
  1. VISTARIL [Concomitant]
     Active Substance: HYDROXYZINE PAMOATE
  2. NEXPLANON [Suspect]
     Active Substance: ETONOGESTREL
     Indication: CONTRACEPTION
     Dosage: EVERY THREE YEARS
     Route: 059
  3. NEURONTIN [Concomitant]
     Active Substance: GABAPENTIN
  4. PRAZOSIN. [Concomitant]
     Active Substance: PRAZOSIN
  5. EFFEXOR [Concomitant]
     Active Substance: VENLAFAXINE HYDROCHLORIDE

REACTIONS (5)
  - Dizziness [Unknown]
  - Implant site rash [Unknown]
  - Implant site bruising [Unknown]
  - Palpitations [Unknown]
  - Complication associated with device [Unknown]

NARRATIVE: CASE EVENT DATE: 20170419
